FAERS Safety Report 24680358 (Version 1)
Quarter: 2024Q4

REPORT INFORMATION
  Report Type: Spontaneous
  Country: US (occurrence: US)
  Receive Date: 20241129
  Receipt Date: 20241129
  Transmission Date: 20250115
  Serious: Yes (Other)
  Sender: BRACCO
  Company Number: US-BRACCO-2024US03293

PATIENT
  Age: 52 Year
  Sex: Male

DRUGS (15)
  1. LUMASON [Suspect]
     Active Substance: SULFUR HEXAFLUORIDE
     Indication: Ultrasound scan
     Dosage: 5 ML, SINGLE
     Route: 042
     Dates: start: 20240604, end: 20240604
  2. LUMASON [Suspect]
     Active Substance: SULFUR HEXAFLUORIDE
     Indication: Ultrasound scan
     Dosage: 5 ML, SINGLE
     Route: 042
     Dates: start: 20240604, end: 20240604
  3. LUMASON [Suspect]
     Active Substance: SULFUR HEXAFLUORIDE
     Indication: Ultrasound scan
     Dosage: 5 ML, SINGLE
     Route: 042
     Dates: start: 20240604, end: 20240604
  4. ASPIRIN [Concomitant]
     Active Substance: ASPIRIN
  5. ATORVASTATIN [Concomitant]
     Active Substance: ATORVASTATIN
  6. MELATONIN [Concomitant]
     Active Substance: MELATONIN
  7. MAGNESIUM [Concomitant]
     Active Substance: MAGNESIUM
  8. NALOXONE [Concomitant]
     Active Substance: NALOXONE
  9. PIPERACILLIN [Concomitant]
     Active Substance: PIPERACILLIN
  10. RINGERS SOLUTION [Concomitant]
     Active Substance: CALCIUM CHLORIDE\POTASSIUM CHLORIDE\SODIUM CHLORIDE
  11. SENOKOT [Concomitant]
     Active Substance: SENNOSIDES
  12. SIMETHICONE (DIMETHICONE) [Concomitant]
     Active Substance: DIMETHICONE
  13. TAMSULOSIN [Concomitant]
     Active Substance: TAMSULOSIN
  14. TYLENOL [Concomitant]
     Active Substance: ACETAMINOPHEN
  15. ZOFRAN [Concomitant]
     Active Substance: ONDANSETRON HYDROCHLORIDE

REACTIONS (4)
  - Hypotension [Recovered/Resolved]
  - Tachycardia [Recovered/Resolved]
  - Oxygen saturation decreased [Recovered/Resolved]
  - Anxiety [Recovered/Resolved]

NARRATIVE: CASE EVENT DATE: 20240604
